FAERS Safety Report 8469637 (Version 4)
Quarter: 2012Q4

REPORT INFORMATION
  Report Type: 
  Country: SE (occurrence: SE)
  Receive Date: 20120321
  Receipt Date: 20121207
  Transmission Date: 20130627
  Serious: Yes (Other)
  Sender: FDA-Public Use
  Company Number: PHHY2012SE022832

PATIENT
  Age: 63 Year
  Sex: Male

DRUGS (8)
  1. CLOZAPINE [Suspect]
     Dosage: 50 mg, in the morning
     Route: 048
  2. LEPONEX [Suspect]
     Dosage: 100 mg, in the evening
     Route: 048
  3. CLOZAPINE ACTAVIS [Suspect]
     Dosage: 400 mg, at night
     Route: 048
  4. ENALAPRIL ASTIMEX [Concomitant]
  5. METHYLSCOPOLAMINE [Concomitant]
  6. METOPROLOL SANDOZ [Concomitant]
  7. NOZINAN [Concomitant]
  8. CISORDINOL [Concomitant]

REACTIONS (6)
  - Aggression [Not Recovered/Not Resolved]
  - Blood pressure increased [Recovering/Resolving]
  - Prostatic disorder [Unknown]
  - Heart rate increased [Recovering/Resolving]
  - Middle insomnia [Unknown]
  - Dizziness [Not Recovered/Not Resolved]
